FAERS Safety Report 15991276 (Version 4)
Quarter: 2019Q2

REPORT INFORMATION
  Report Type: Spontaneous
  Country: AT (occurrence: AT)
  Receive Date: 20190221
  Receipt Date: 20190617
  Transmission Date: 20190711
  Serious: Yes (Death, Hospitalization, Other)
  Sender: FDA-Public Use
  Company Number: AT-MYLANLABS-2019M1015271

PATIENT
  Age: 80 Year
  Sex: Female

DRUGS (70)
  1. BISOPROLOL [Interacting]
     Active Substance: BISOPROLOL
     Indication: CORONARY ARTERY DISEASE
     Dosage: 5 MILLIGRAM, QD,IN TWO DIVIDED DOSES, PNE IN THE MORNING AND ONE AT NIGHT
     Route: 065
  2. RISPERIDONE. [Interacting]
     Active Substance: RISPERIDONE
     Indication: PRODUCT USED FOR UNKNOWN INDICATION
     Dosage: 1 MILLIGRAM NOCTE (HALF DOSE AT NIGHT)
     Route: 065
  3. LEVOTHYROXINE. [Interacting]
     Active Substance: LEVOTHYROXINE
     Indication: HYPERTHYROIDISM
     Dosage: 125 MILLIGRAM, QD (HALF DOSE ONCE IN THE MORNING)
     Route: 065
  4. IBANDRONATE [Interacting]
     Active Substance: IBANDRONATE SODIUM
     Indication: PERIPHERAL VENOUS DISEASE
  5. VITAMIN D                          /00107901/ [Interacting]
     Active Substance: ERGOCALCIFEROL
     Indication: VITAMIN D DEFICIENCY
     Dosage: 16000 INTERNATIONAL UNIT, QW,WEEKLY
     Route: 065
  6. SALMETEROL [Interacting]
     Active Substance: SALMETEROL
     Indication: CHRONIC OBSTRUCTIVE PULMONARY DISEASE
     Dosage: 4 DOSAGE FORM, QD,PUFFS
     Route: 055
  7. ALGELDRATE [Concomitant]
     Active Substance: ALGELDRATE
     Indication: GASTROOESOPHAGEAL REFLUX DISEASE
     Dosage: UNK, PRN,AS NEEDED, MAX 2X1
     Route: 065
  8. DULOXETINE. [Interacting]
     Active Substance: DULOXETINE
     Indication: PAIN
     Dosage: 120 MILLIGRAM, QD
     Route: 065
  9. CLOPIDOGREL [Interacting]
     Active Substance: CLOPIDOGREL BISULFATE
     Indication: CORONARY ARTERY DISEASE
     Dosage: 75 MILLIGRAM, QD
     Route: 065
  10. GABAPENTIN. [Interacting]
     Active Substance: GABAPENTIN
     Dosage: 600 MILLIGRAM, QD
     Route: 065
  11. LISALGIL [Suspect]
     Active Substance: METAMIZOLE SODIUM
     Indication: PRODUCT USED FOR UNKNOWN INDICATION
     Dosage: 50 MILLIGRAM, QD
     Route: 042
  12. DIPHENHYDRAMINE. [Concomitant]
     Active Substance: DIPHENHYDRAMINE
     Indication: PRODUCT USED FOR UNKNOWN INDICATION
     Dosage: UNK
     Route: 065
  13. PRAMIPEXOLE. [Suspect]
     Active Substance: PRAMIPEXOLE
     Indication: RESTLESS LEGS SYNDROME
     Dosage: 2.1 MILLIGRAM, QD
     Route: 065
  14. DULOXETINE. [Interacting]
     Active Substance: DULOXETINE
     Dosage: 60 MILLIGRAM, QD
     Route: 065
  15. BISOPROLOL [Interacting]
     Active Substance: BISOPROLOL
     Dosage: 2.5 MG, (IN TWO DIVIDED DOSES, PNE IN THE MORNING AND
  16. BISOPROLOL [Interacting]
     Active Substance: BISOPROLOL
     Dosage: 3 MILLIGRAM, QD (3 MG, DRUG INTERVAL DOSAGE UNIT NUMBER 1 DAY)
     Route: 065
  17. DICLOFENAC [Interacting]
     Active Substance: DICLOFENAC
     Dosage: 75 MG, MAX 2*1 AS NEEDED IN CASE OF PAIN
     Route: 065
  18. DICLOFENAC [Interacting]
     Active Substance: DICLOFENAC
     Dosage: 300 MILLIGRAM, QD (150 MG, DRUG INTERVAL DOSAGE UNIT NUMBER 1 DAY)
     Route: 065
  19. IBANDRONATE [Interacting]
     Active Substance: IBANDRONATE SODIUM
     Indication: OSTEOPOROSIS
     Dosage: 3 MILLIGRAM, Q3MONTHS,EVERY 3 MONTHS
     Route: 065
  20. ACETAZOLAMIDE. [Interacting]
     Active Substance: ACETAZOLAMIDE
     Indication: HYPERCAPNIA
     Dosage: 50 MILLIGRAM, QD (ONCE IN THE MORNING)
     Route: 065
  21. ACETAZOLAMIDE. [Interacting]
     Active Substance: ACETAZOLAMIDE
     Dosage: 36 MILLIGRAM, QD (DRUG INTERVAL DOSAGE UNIT NUMBER 1 DAY)
     Route: 065
  22. FLUTICASONE. [Interacting]
     Active Substance: FLUTICASONE
     Dosage: 460 MICROGRAM, QD
     Route: 055
  23. OXYGEN. [Interacting]
     Active Substance: OXYGEN
     Indication: HYPOXIA
     Dosage: 2 LITER, UNK
     Route: 065
  24. OXYGEN. [Interacting]
     Active Substance: OXYGEN
     Indication: PERIPHERAL VENOUS DISEASE
  25. HESPERIDIN [Concomitant]
     Active Substance: HESPERIDIN
     Indication: PERIPHERAL VENOUS DISEASE
     Dosage: 50 MILLIGRAM, QD,AT PATIENTS INSISTENCE
     Route: 065
  26. PIPERACILIN/TAZOBACTAM [Concomitant]
     Active Substance: PIPERACILLIN SODIUM\TAZOBACTAM SODIUM
     Indication: PRODUCT USED FOR UNKNOWN INDICATION
     Dosage: UNK
     Route: 065
  27. TRAMADOL. [Interacting]
     Active Substance: TRAMADOL
     Indication: PAIN
     Dosage: 200 MILLIGRAM, QD
     Route: 065
  28. ATORVASTATIN [Interacting]
     Active Substance: ATORVASTATIN
     Indication: HYPERCHOLESTEROLAEMIA
     Dosage: 40 MILLIGRAM, QD (SUPERFLUOUS IN HINDSIGHT)
     Route: 065
  29. ALPRAZOLAM. [Interacting]
     Active Substance: ALPRAZOLAM
     Indication: DYSPNOEA
     Dosage: UNK
     Route: 065
  30. PREDNISONE. [Interacting]
     Active Substance: PREDNISONE
     Dosage: 5 MILLIGRAM, QD
     Route: 065
  31. FLUTICASONE. [Interacting]
     Active Substance: FLUTICASONE
     Dosage: 460 UG, BID, PUFFS
     Route: 055
     Dates: start: 20151123
  32. LISALGIL [Suspect]
     Active Substance: METAMIZOLE SODIUM
     Dosage: 25 MILLIGRAM, QD
     Route: 042
  33. SALMETEROL [Interacting]
     Active Substance: SALMETEROL
     Dosage: 47 UG, PUFFS (2 DOSAGE FORMS,2-0-2)
     Route: 055
  34. FENOTEROL [Suspect]
     Active Substance: FENOTEROL
     Dosage: 0.05 MG, MAX 4*2 PUFFS AS NEEDED IN CASE OF DYSPNOEA
     Route: 055
  35. DULOXETINE. [Interacting]
     Active Substance: DULOXETINE
     Dosage: 600 MILLIGRAM, QD
     Route: 065
  36. ALPRAZOLAM. [Interacting]
     Active Substance: ALPRAZOLAM
     Indication: FEAR
     Dosage: 0.5 MILLIGRAM, QD (IN 2 DIVIDED DOSES,1 IN MORNING AND 1 IN NIGHT)
     Route: 065
  37. FLUTICASONE. [Interacting]
     Active Substance: FLUTICASONE
     Indication: CHRONIC OBSTRUCTIVE PULMONARY DISEASE
     Dosage: 920 MICROGRAM, QD
     Route: 055
  38. LISALGIL [Suspect]
     Active Substance: METAMIZOLE SODIUM
     Dosage: UNK
     Route: 065
  39. LEVODOPA [Interacting]
     Active Substance: LEVODOPA
     Indication: RESTLESS LEGS SYNDROME
     Dosage: 100 MILLIGRAM, QD
     Route: 065
  40. DULOXETINE. [Interacting]
     Active Substance: DULOXETINE
     Indication: DEPRESSION
     Dosage: UNK
     Route: 065
  41. DULOXETINE. [Interacting]
     Active Substance: DULOXETINE
     Dosage: 60 MILLIGRAM, BID
     Route: 065
     Dates: start: 20151123
  42. GABAPENTIN. [Interacting]
     Active Substance: GABAPENTIN
     Indication: PAIN
     Dosage: 1200 MILLIGRAM, QD
     Route: 065
  43. ACETAZOLAMIDE. [Interacting]
     Active Substance: ACETAZOLAMIDE
     Indication: ALKALOSIS
     Dosage: 250 MILLIGRAM, QW
     Route: 065
     Dates: start: 20151123
  44. BENSERAZIDE [Suspect]
     Active Substance: BENSERAZIDE
     Indication: RESTLESS LEGS SYNDROME
     Dosage: 25 MILLIGRAM, QD
     Route: 065
  45. OXYGEN. [Interacting]
     Active Substance: OXYGEN
     Indication: CHRONIC OBSTRUCTIVE PULMONARY DISEASE
     Dosage: UNK
     Route: 065
  46. DIOSMIN [Interacting]
     Active Substance: DIOSMIN
     Indication: PERIPHERAL VENOUS DISEASE
     Dosage: 450 MILLIGRAM, QD,AT PATIENTS INSISTENCE , (450 MG/50 MG),QD (1-0-0)
     Route: 065
  47. ACETYLSALICYLIC ACID MYLAN [Interacting]
     Active Substance: ASPIRIN
     Indication: PAIN
  48. MORPHINE HYDROCHLORIDE [Concomitant]
     Active Substance: MORPHINE HYDROCHLORIDE
     Indication: PRODUCT USED FOR UNKNOWN INDICATION
     Dosage: UNK
     Route: 065
  49. FUROSEMIDE. [Concomitant]
     Active Substance: FUROSEMIDE
     Dosage: 40 MILLIGRAM
     Route: 065
  50. IPRATROPIUM [Concomitant]
     Active Substance: IPRATROPIUM
     Dosage: 0.02 MG, MAX 4X2 PUFFS AS NEEDED IN CASE OF DYSPNOEA
     Route: 065
  51. OMEPRAZOLE. [Interacting]
     Active Substance: OMEPRAZOLE
     Indication: GASTRITIS
     Dosage: 80 MILLIGRAM, QD
     Route: 065
  52. PREDNISONE. [Interacting]
     Active Substance: PREDNISONE
     Indication: CHRONIC OBSTRUCTIVE PULMONARY DISEASE
     Dosage: 25 MILLIGRAM, QD (UNTIL FOLLOW-UP)
     Route: 065
  53. ACETYLCYSTEINE. [Interacting]
     Active Substance: ACETYLCYSTEINE
     Indication: CHRONIC OBSTRUCTIVE PULMONARY DISEASE
     Dosage: 600 MILLIGRAM, QD
     Route: 065
  54. DICLOFENAC [Interacting]
     Active Substance: DICLOFENAC
     Indication: PAIN
     Dosage: UNK, PRN,MAX 2X1 AS NEEDED IN CASE OF PAIN
     Route: 065
  55. THEOPHYLLINE [Interacting]
     Active Substance: THEOPHYLLINE ANHYDROUS
     Dosage: 200 MILLIGRAM, QD
     Route: 065
  56. SERTRALINE [Interacting]
     Active Substance: SERTRALINE HYDROCHLORIDE
     Indication: DEPRESSION
     Dosage: 50 MILLIGRAM, QD (ONCE MORNING)
     Route: 065
  57. SERTRALINE [Interacting]
     Active Substance: SERTRALINE HYDROCHLORIDE
     Indication: PANIC ATTACK
  58. ACETYLSALICYLIC ACID MYLAN [Interacting]
     Active Substance: ASPIRIN
     Indication: CORONARY ARTERY DISEASE
     Dosage: 100 MILLIGRAM, QD
     Route: 065
  59. FENOTEROL [Suspect]
     Active Substance: FENOTEROL
     Indication: CHRONIC OBSTRUCTIVE PULMONARY DISEASE
     Dosage: UNK, PRN, MAX 4X2 PUFFS AS NEEDED IN CASE OF DYSPNOEA
     Route: 055
  60. SPIRIVA [Interacting]
     Active Substance: TIOTROPIUM BROMIDE MONOHYDRATE
     Indication: CHRONIC OBSTRUCTIVE PULMONARY DISEASE
     Dosage: 18 MICROGRAM, QD,PUFF (1 DOSAGE)
     Route: 055
     Dates: start: 20151123
  61. BENSERAZIDE [Concomitant]
     Active Substance: BENSERAZIDE
     Indication: HYPOTHYROIDISM
     Dosage: UNK
     Route: 065
  62. BENSERAZIDE [Concomitant]
     Active Substance: BENSERAZIDE
     Indication: RESTLESS LEGS SYNDROME
  63. LEVOTHYROXINE. [Interacting]
     Active Substance: LEVOTHYROXINE
     Dosage: 75 MICROGRAM, QD
     Route: 065
  64. THEOPHYLLINE [Interacting]
     Active Substance: THEOPHYLLINE ANHYDROUS
     Indication: CHRONIC OBSTRUCTIVE PULMONARY DISEASE
     Dosage: 400 MILLIGRAM, QD
     Route: 065
  65. HYDROMORPHONE [Interacting]
     Active Substance: HYDROMORPHONE
     Indication: PAIN
     Dosage: 4 MILLIGRAM, QD (ONCE IN THE MORNING))
     Route: 065
  66. SALMETEROL [Interacting]
     Active Substance: SALMETEROL
     Dosage: 2 DOSAGE FORM, QD PUFFS
     Route: 055
  67. METHYLPREDNISOLONE. [Suspect]
     Active Substance: METHYLPREDNISOLONE
     Indication: PRODUCT USED FOR UNKNOWN INDICATION
     Dosage: 64 MILLIGRAM, QD
     Route: 042
  68. ALGELDRATE [Concomitant]
     Active Substance: ALGELDRATE
     Dosage: 340 MG, AS NEEDED, MAX 2*1 (AS REQUIRED)
     Route: 065
  69. FUROSEMIDE. [Concomitant]
     Active Substance: FUROSEMIDE
     Indication: PRODUCT USED FOR UNKNOWN INDICATION
     Dosage: UNK
     Route: 065
  70. IPRATROPIUM [Concomitant]
     Active Substance: IPRATROPIUM
     Indication: CHRONIC OBSTRUCTIVE PULMONARY DISEASE
     Dosage: UNK
     Route: 065

REACTIONS (17)
  - Drug interaction [Fatal]
  - Urinary tract infection [Fatal]
  - Arthralgia [Fatal]
  - Prescribed underdose [Unknown]
  - Chronic obstructive pulmonary disease [Fatal]
  - Acute respiratory failure [Fatal]
  - Death [Fatal]
  - Lung disorder [Fatal]
  - Acute myocardial infarction [Fatal]
  - Somnolence [Fatal]
  - Erysipelas [Fatal]
  - Back pain [Fatal]
  - Clostridium difficile colitis [Fatal]
  - Hypercapnia [Fatal]
  - Delirium [Fatal]
  - Pain [Fatal]
  - Off label use [Unknown]

NARRATIVE: CASE EVENT DATE: 201510
